FAERS Safety Report 5535829-X (Version None)
Quarter: 2007Q4

REPORT INFORMATION
  Report Type: 
  Country: None (occurrence: None)
  Receive Date: 20071206
  Receipt Date: 20071206
  Transmission Date: 20080405
  Serious: Yes (Other)
  Sender: FDA-Public Use
  Company Number: D0054872A

PATIENT
  Age: 56 Year
  Sex: Female
  Weight: 50 kg

DRUGS (3)
  1. KIVEXA [Suspect]
     Indication: HIV INFECTION
     Route: 048
     Dates: start: 20070501, end: 20071001
  2. KALETRA [Concomitant]
     Indication: HIV INFECTION
     Dosage: 3CAP TWICE PER DAY
     Route: 048
     Dates: start: 20040301
  3. COMBIVIR [Concomitant]
     Route: 048
     Dates: end: 20070501

REACTIONS (3)
  - ALOPECIA [None]
  - ARTHRALGIA [None]
  - MYALGIA [None]
